FAERS Safety Report 25351015 (Version 3)
Quarter: 2025Q3

REPORT INFORMATION
  Report Type: Spontaneous
  Country: AU (occurrence: AU)
  Receive Date: 20250523
  Receipt Date: 20250804
  Transmission Date: 20251020
  Serious: Yes (Other)
  Sender: ALEXION PHARMACEUTICALS
  Company Number: AU-ASTRAZENECA-202505GLO014517AU

PATIENT
  Age: 68 Year
  Sex: Male

DRUGS (1)
  1. ROSUVASTATIN [Suspect]
     Active Substance: ROSUVASTATIN
     Indication: Phytosterolaemia
     Route: 065

REACTIONS (2)
  - Drug intolerance [Unknown]
  - Myalgia [Unknown]
